FAERS Safety Report 14328262 (Version 4)
Quarter: 2019Q2

REPORT INFORMATION
  Report Type: Spontaneous
  Country: US (occurrence: US)
  Receive Date: 20171227
  Receipt Date: 20190521
  Transmission Date: 20190711
  Serious: No
  Sender: FDA-Public Use
  Company Number: US-PFIZER INC-2017548223

PATIENT
  Age: 77 Year
  Sex: Female
  Weight: 69 kg

DRUGS (6)
  1. TRAZODONE [Concomitant]
     Active Substance: TRAZODONE HYDROCHLORIDE
     Indication: DEPRESSION
     Dosage: 50 MG, 1X/DAY (50MG TABLETS, TAKES ONE IN THE MORNING BY MOUTH)
     Route: 048
  2. VENLAFAXINE HCL [Concomitant]
     Active Substance: VENLAFAXINE HYDROCHLORIDE
     Indication: DEPRESSION
     Dosage: 75 MG, 1X/DAY (75MG ONCE AT NIGHT BY MOUTH)
     Route: 048
  3. IBRANCE [Suspect]
     Active Substance: PALBOCICLIB
     Dosage: 75 MG, 1X/DAY
     Route: 048
  4. IBRANCE [Suspect]
     Active Substance: PALBOCICLIB
     Indication: BREAST CANCER METASTATIC
     Dosage: 125 MG, 1X/DAY
     Route: 048
     Dates: start: 20171201
  5. LETROZOLE. [Concomitant]
     Active Substance: LETROZOLE
     Indication: BREAST CANCER FEMALE
     Dosage: 2.5 MG, 1X/DAY
     Dates: start: 201712
  6. IBRANCE [Suspect]
     Active Substance: PALBOCICLIB
     Dosage: 100 MG, 1X/DAY
     Route: 048

REACTIONS (10)
  - Arthralgia [Unknown]
  - Arthritis [Unknown]
  - Nausea [Recovering/Resolving]
  - Gingival erythema [Not Recovered/Not Resolved]
  - Gingival injury [Not Recovered/Not Resolved]
  - Tongue erythema [Not Recovered/Not Resolved]
  - White blood cell count decreased [Unknown]
  - Asthenia [Recovering/Resolving]
  - Oral pain [Not Recovered/Not Resolved]
  - Plicated tongue [Not Recovered/Not Resolved]

NARRATIVE: CASE EVENT DATE: 20171214
